FAERS Safety Report 10039070 (Version 2)
Quarter: 2014Q1

REPORT INFORMATION
  Report Type: Not Available
  Country: US (occurrence: US)
  Receive Date: 20140326
  Receipt Date: 20140331
  Transmission Date: 20141002
  Serious: Yes (Hospitalization)
  Sender: FDA-Public Use
  Company Number: US-ONYX-2014-0616

PATIENT
  Sex: Male

DRUGS (5)
  1. KYPROLIS [Suspect]
     Indication: PLASMA CELL MYELOMA
     Route: 042
     Dates: start: 201306
  2. LISINOPRIL [Concomitant]
     Indication: HYPERTENSION
  3. VITAMINS [Concomitant]
     Indication: VITAMIN SUPPLEMENTATION
  4. INSULIN [Concomitant]
     Indication: DIABETES MELLITUS
  5. DECADRON [Concomitant]
     Indication: PLASMA CELL MYELOMA

REACTIONS (5)
  - Dyspnoea [Recovered/Resolved]
  - White blood cell count decreased [Recovered/Resolved]
  - Asthenia [Recovered/Resolved]
  - Weight decreased [Recovered/Resolved]
  - Blood glucose increased [Not Recovered/Not Resolved]
